FAERS Safety Report 7783156-2 (Version None)
Quarter: 2011Q3

REPORT INFORMATION
  Report Type: 
  Country: None (occurrence: None)
  Receive Date: 20110928
  Receipt Date: 20110923
  Transmission Date: 20111222
  Serious: Yes (Death, Hospitalization)
  Sender: FDA-Public Use
  Company Number: FR-CELGENEUS-056-C5013-11021892

PATIENT
  Sex: Male

DRUGS (18)
  1. VISKEN [Concomitant]
     Dosage: 7.5 MILLIGRAM
     Route: 048
     Dates: start: 19990101
  2. LENALIDOMIDE [Suspect]
     Indication: MULTIPLE MYELOMA
     Dosage: 25 MILLIGRAM
     Route: 048
     Dates: start: 20090311
  3. CLASTOBAN [Concomitant]
     Indication: PROPHYLAXIS
     Dosage: 1600 MILLIGRAM
     Route: 048
     Dates: start: 20090310
  4. DACRYOSERUM [Concomitant]
     Indication: BRONCHITIS
     Route: 047
     Dates: start: 20100515, end: 20100630
  5. DEXAMETHASONE [Suspect]
     Indication: MULTIPLE MYELOMA
     Dosage: 20 MILLIGRAM
     Route: 065
     Dates: start: 20090311
  6. ACETAMINOPHEN [Concomitant]
     Indication: BACK PAIN
     Dosage: 2000 MILLIGRAM
     Route: 048
     Dates: start: 20090731
  7. RHINOTROPHYL [Concomitant]
     Indication: GASTRIC ULCER
     Route: 045
     Dates: start: 20110118, end: 20110124
  8. DACRYOSERUM [Concomitant]
     Route: 047
     Dates: start: 20100118, end: 20100124
  9. DIFFU K [Concomitant]
     Indication: PROPHYLAXIS
     Dosage: 1800 MILLIGRAM
     Route: 048
     Dates: start: 20100701
  10. IPERTEN [Concomitant]
     Dosage: 10 MILLIGRAM
     Route: 048
     Dates: start: 20100517
  11. CARBOCISTEINE [Concomitant]
     Indication: BRONCHITIS
     Route: 048
     Dates: start: 20100118, end: 20100124
  12. MAGNESIUM HYDROXIDE TAB [Concomitant]
     Route: 048
     Dates: start: 20100506
  13. IMPROMEN [Concomitant]
     Dosage: 10 MILLIGRAM
     Route: 048
     Dates: start: 20100501
  14. DIFFU K [Concomitant]
     Route: 048
     Dates: start: 20090924
  15. AUGMENTIN '125' [Concomitant]
     Indication: BRONCHITIS
     Dosage: 1 GRAM
     Route: 048
     Dates: start: 20110118, end: 20110124
  16. TOBREX [Concomitant]
     Indication: CONJUNCTIVITIS
     Route: 047
     Dates: start: 20100516, end: 20100630
  17. TOBREX [Concomitant]
     Route: 047
     Dates: start: 20100118, end: 20100124
  18. NEXIUM [Concomitant]
     Indication: GASTRIC ULCER
     Dosage: 40 MILLIGRAM
     Route: 048
     Dates: start: 20000101

REACTIONS (1)
  - BILE DUCT CANCER [None]
